FAERS Safety Report 17940525 (Version 4)
Quarter: 2020Q4

REPORT INFORMATION
  Report Type: Report from Study
  Country: US (occurrence: US)
  Receive Date: 20200625
  Receipt Date: 20201112
  Transmission Date: 20210113
  Serious: Yes (Other)
  Sender: FDA-Public Use
  Company Number: US-ROCHE-2629060

PATIENT
  Age: 45 Year
  Sex: Female

DRUGS (4)
  1. COBIMETINIB. [Suspect]
     Active Substance: COBIMETINIB
     Indication: POORLY DIFFERENTIATED THYROID CARCINOMA
     Route: 048
     Dates: start: 20190816
  2. VEMURAFENIB. [Suspect]
     Active Substance: VEMURAFENIB
     Dosage: DECREASED PER PROTOCOL TO 720 MG
     Route: 048
     Dates: start: 20190816
  3. ATEZOLIZUMAB. [Suspect]
     Active Substance: ATEZOLIZUMAB
     Indication: POORLY DIFFERENTIATED THYROID CARCINOMA
     Route: 042
     Dates: start: 20190816
  4. VEMURAFENIB. [Suspect]
     Active Substance: VEMURAFENIB
     Indication: POORLY DIFFERENTIATED THYROID CARCINOMA
     Route: 048
     Dates: start: 20190816

REACTIONS (1)
  - Ejection fraction decreased [Recovered/Resolved]

NARRATIVE: CASE EVENT DATE: 20200504
